FAERS Safety Report 9286100 (Version 1)
Quarter: 2013Q2

REPORT INFORMATION
  Report Type: Spontaneous
  Country: US (occurrence: None)
  Receive Date: 20130510
  Receipt Date: 20130510
  Transmission Date: 20140414
  Serious: Yes (Life-Threatening)
  Sender: FDA-Public Use
  Company Number: None

PATIENT
  Age: 49 Year
  Sex: Male
  Weight: 95.7 kg

DRUGS (1)
  1. CEFTRIAXONE [Suspect]
     Indication: PERITONITIS BACTERIAL
     Route: 042
     Dates: start: 20130501, end: 20130501

REACTIONS (4)
  - Infusion related reaction [None]
  - Mental status changes [None]
  - Anaphylactic reaction [None]
  - Hypotension [None]
